FAERS Safety Report 9803577 (Version 1)
Quarter: 2014Q1

REPORT INFORMATION
  Report Type: Spontaneous
  Country: US (occurrence: US)
  Receive Date: 20140108
  Receipt Date: 20140108
  Transmission Date: 20141002
  Serious: No
  Sender: FDA-Public Use
  Company Number: US-GLAXOSMITHKLINE-A1009027A

PATIENT
  Age: 63 Year
  Sex: Male

DRUGS (9)
  1. LOVAZA [Suspect]
     Indication: BLOOD CHOLESTEROL INCREASED
     Dosage: 2CAP TWICE PER DAY
     Route: 048
     Dates: start: 201212, end: 20130118
  2. CRESTOR [Concomitant]
  3. WARFARIN [Concomitant]
  4. FOLIC ACID [Concomitant]
  5. FUROSEMIDE [Concomitant]
  6. METOPROLOL [Concomitant]
  7. HYDROCORTISONE [Concomitant]
  8. STEROID INJECTION [Concomitant]
  9. FAMOTIDINE [Concomitant]

REACTIONS (8)
  - Rash [Not Recovered/Not Resolved]
  - Rash [Unknown]
  - Erythema [Unknown]
  - Local swelling [Unknown]
  - Dyspepsia [Unknown]
  - Dyspepsia [Unknown]
  - Flatulence [Unknown]
  - Abdominal pain [Unknown]
